FAERS Safety Report 21063196 (Version 3)
Quarter: 2022Q3

REPORT INFORMATION
  Report Type: Spontaneous
  Country: JP (occurrence: JP)
  Receive Date: 20220711
  Receipt Date: 20220916
  Transmission Date: 20221027
  Serious: Yes (Death, Hospitalization, Other)
  Sender: FDA-Public Use
  Company Number: JP-ASTELLAS-2022JP010328

PATIENT
  Age: 88 Year
  Sex: Male

DRUGS (1)
  1. XTANDI [Suspect]
     Active Substance: ENZALUTAMIDE
     Indication: Hormone-refractory prostate cancer
     Route: 048

REACTIONS (6)
  - Pneumonia [Fatal]
  - Cardiac failure [Fatal]
  - Renal failure [Fatal]
  - Somnolence [Unknown]
  - Decreased activity [Unknown]
  - Renal impairment [Unknown]

NARRATIVE: CASE EVENT DATE: 20220830
